FAERS Safety Report 8577159-8 (Version None)
Quarter: 2012Q3

REPORT INFORMATION
  Report Type: 
  Country: None (occurrence: None)
  Receive Date: 20120807
  Receipt Date: 20120801
  Transmission Date: 20120928
  Serious: Yes (Other)
  Sender: FDA-Public Use
  Company Number: US-BAYER-2012-019063

PATIENT
  Age: 63 Year
  Sex: Male
  Weight: 73.016 kg

DRUGS (30)
  1. INTEGRILIN [Concomitant]
  2. ASPIRIN [Concomitant]
     Dosage: 81 MG, QD
     Route: 048
     Dates: start: 20051026
  3. RED BLOOD CELLS [Concomitant]
     Dosage: 1 U, UNK
     Route: 042
  4. PROTAMINE SULFATE [Concomitant]
  5. METOPROLOL TARTRATE [Concomitant]
  6. INSULIN [Concomitant]
     Dosage: UNK
     Dates: start: 20051028
  7. SODIUM BICARBONATE [Concomitant]
     Dosage: UNK
     Dates: start: 20051028
  8. ATENOLOL [Concomitant]
  9. ISOSORBIDE [Concomitant]
     Dosage: 30 MG, QD
     Route: 048
     Dates: start: 20051025
  10. HYDRALAZINE HCL [Concomitant]
     Dosage: 50MG 4X DAILY
     Route: 048
     Dates: start: 20051026
  11. ENOXAPARIN [Concomitant]
     Dosage: 80MG EVERY 12 HOURS
     Route: 058
     Dates: start: 20051026
  12. MORPHINE SULFATE [Concomitant]
     Dosage: 2 MG, PRN
     Route: 042
     Dates: start: 20051026
  13. VANCOMYCIN [Concomitant]
     Dosage: UNK
     Dates: start: 20051028
  14. AMIODARONE HCL [Concomitant]
     Dosage: UNK
     Dates: start: 20051028
  15. NORVASC [Concomitant]
  16. HEPARIN [Concomitant]
  17. SIMVASTATIN [Concomitant]
     Dosage: 40 MG, HS
     Route: 048
     Dates: start: 20051025
  18. DIAZEPAM [Concomitant]
     Dosage: UNK
     Route: 048
     Dates: start: 20051026
  19. PAPAVERINE [Concomitant]
     Dosage: UNK
     Dates: start: 20051028
  20. THROMBIN NOS [Concomitant]
     Dosage: UNK
     Dates: start: 20051028
  21. FLOSEAL MATRIX [Concomitant]
     Dosage: UNK
     Dates: start: 20051028
  22. TRASYLOL [Suspect]
     Indication: CORONARY ARTERY BYPASS
     Dosage: 200 ML LOADING DOSE FOLLOWED BY 500 CC/HR INFUSION
     Route: 042
     Dates: start: 20051028
  23. VERSED [Concomitant]
  24. DIPHENHYDRAMINE HCL [Concomitant]
     Dosage: UNK
     Route: 048
     Dates: start: 20051026
  25. MAGNESIUM SULFATE [Concomitant]
     Dosage: UNK
     Dates: start: 20051028
  26. TRASYLOL [Suspect]
     Indication: PHLEBECTOMY
     Dosage: 300CC PUMP PRIME, AND ADDITIONAL 100CC AT 1432
     Dates: start: 20051028
  27. COZAAR [Concomitant]
  28. NITROGLYCERIN [Concomitant]
     Dosage: UNK
     Route: 042
     Dates: start: 20051026
  29. ACETAMINOPHEN [Concomitant]
     Dosage: 650 MG, PRN
     Route: 048
     Dates: start: 20051026
  30. GELFOAM [Concomitant]
     Dosage: UNK
     Dates: start: 20051028

REACTIONS (5)
  - BLOOD UREA INCREASED [None]
  - CHEST PAIN [None]
  - BLOOD CREATININE INCREASED [None]
  - RENAL FAILURE CHRONIC [None]
  - MYOCARDIAL INFARCTION [None]
